FAERS Safety Report 14388129 (Version 2)
Quarter: 2018Q2

REPORT INFORMATION
  Report Type: Spontaneous
  Country: US (occurrence: US)
  Receive Date: 20180115
  Receipt Date: 20180615
  Transmission Date: 20180711
  Serious: Yes (Other)
  Sender: FDA-Public Use
  Company Number: US-SA-2017SA213560

PATIENT
  Age: 67 Year
  Sex: Female
  Weight: 81 kg

DRUGS (13)
  1. CYCLOPHOSPHAMIDE. [Concomitant]
     Active Substance: CYCLOPHOSPHAMIDE
     Indication: PRODUCT USED FOR UNKNOWN INDICATION
  2. ADRIAMYCIN [DOXORUBICIN] [Concomitant]
     Indication: CHEMOTHERAPY
  3. TAXOTERE [Suspect]
     Active Substance: DOCETAXEL
     Indication: BREAST CANCER
     Dosage: 180 MG,QW
     Route: 042
     Dates: start: 20100225, end: 20100225
  4. HYDROCHLOROTHIAZIDE. [Concomitant]
     Active Substance: HYDROCHLOROTHIAZIDE
     Indication: PRODUCT USED FOR UNKNOWN INDICATION
     Dosage: UNK
     Dates: start: 20090901, end: 20101031
  5. NEOSAR [Concomitant]
     Active Substance: CYCLOPHOSPHAMIDE
     Indication: CHEMOTHERAPY
  6. METHYLDOPA. [Concomitant]
     Active Substance: METHYLDOPA
     Indication: PRODUCT USED FOR UNKNOWN INDICATION
     Dosage: UNK
     Dates: start: 20090101, end: 20101231
  7. PARACETAMOL [Concomitant]
     Active Substance: ACETAMINOPHEN
     Indication: PRODUCT USED FOR UNKNOWN INDICATION
  8. CARVEDILOL. [Concomitant]
     Active Substance: CARVEDILOL
     Indication: PRODUCT USED FOR UNKNOWN INDICATION
  9. PACLITAXEL. [Concomitant]
     Active Substance: PACLITAXEL
     Indication: CHEMOTHERAPY
  10. DOXORUBICIN [Suspect]
     Active Substance: DOXORUBICIN
     Indication: CHEMOTHERAPY
  11. TAXOTERE [Suspect]
     Active Substance: DOCETAXEL
     Dosage: 180 MG,QW
     Route: 042
     Dates: start: 20100107, end: 20100107
  12. AMBIEN [Concomitant]
     Active Substance: ZOLPIDEM TARTRATE
     Indication: PRODUCT USED FOR UNKNOWN INDICATION
     Dosage: UNK
     Dates: start: 20090901, end: 20101231
  13. TAXOL [Concomitant]
     Active Substance: PACLITAXEL
     Indication: CHEMOTHERAPY

REACTIONS (4)
  - Psychological trauma [Unknown]
  - Alopecia [Recovering/Resolving]
  - Anxiety [Unknown]
  - Emotional distress [Unknown]

NARRATIVE: CASE EVENT DATE: 201008
